FAERS Safety Report 20453959 (Version 1)
Quarter: 2022Q1

REPORT INFORMATION
  Report Type: Spontaneous
  Country: IL (occurrence: IL)
  Receive Date: 20220210
  Receipt Date: 20220210
  Transmission Date: 20220423
  Serious: Yes (Death, Other)
  Sender: FDA-Public Use
  Company Number: IL-009507513-2202ISR002390

PATIENT
  Age: 31 Year
  Sex: Female

DRUGS (2)
  1. KEYTRUDA [Suspect]
     Active Substance: PEMBROLIZUMAB
     Indication: Renal cancer metastatic
     Dosage: UNK
  2. LENVATINIB MESYLATE [Suspect]
     Active Substance: LENVATINIB MESYLATE
     Indication: Renal cancer metastatic
     Dosage: UNK
     Route: 048

REACTIONS (2)
  - Death [Fatal]
  - Malignant neoplasm progression [Unknown]

NARRATIVE: CASE EVENT DATE: 20220101
